FAERS Safety Report 15710749 (Version 2)
Quarter: 2019Q1

REPORT INFORMATION
  Report Type: Report from Study
  Country: CA (occurrence: CA)
  Receive Date: 20181211
  Receipt Date: 20190211
  Transmission Date: 20190417
  Serious: Yes (Hospitalization, Other)
  Sender: FDA-Public Use
  Company Number: CA-SA-2016SA141251

PATIENT
  Age: 38 Year
  Sex: Female

DRUGS (12)
  1. GRAVOL [Suspect]
     Active Substance: DIMENHYDRINATE
     Indication: PREMEDICATION
     Dosage: 50 MG,UNK
     Route: 048
     Dates: start: 20160727, end: 20160728
  2. PANTOPRAZOLE [Concomitant]
     Active Substance: PANTOPRAZOLE
     Dosage: UNK UNK, UNK
     Route: 065
  3. CITALOPRAM [Concomitant]
     Active Substance: CITALOPRAM HYDROBROMIDE
     Dosage: UNK UNK, UNK
     Route: 065
  4. DIPHENHYDRAMINE HYDROCHLORIDE. [Suspect]
     Active Substance: DIPHENHYDRAMINE HYDROCHLORIDE
     Indication: PREMEDICATION
     Dosage: 50 MG, UNK
     Route: 048
     Dates: start: 20160727, end: 20160729
  5. PREGABALIN. [Concomitant]
     Active Substance: PREGABALIN
     Dosage: UNK UNK, UNK
     Route: 065
  6. ALEMTUZUMAB [Suspect]
     Active Substance: ALEMTUZUMAB
     Indication: RELAPSING-REMITTING MULTIPLE SCLEROSIS
     Dosage: 12 MG,QD
     Route: 041
     Dates: start: 20160727, end: 20160729
  7. ACETAMINOPHEN. [Concomitant]
     Active Substance: ACETAMINOPHEN
     Indication: PREMEDICATION
     Dosage: 975 MG,PRN
     Route: 048
     Dates: start: 20160727
  8. METHYLPREDNISOLONE. [Suspect]
     Active Substance: METHYLPREDNISOLONE
     Indication: PREMEDICATION
     Dosage: 1 G,UNK
     Route: 048
     Dates: start: 20160727, end: 20160729
  9. ACICLOVIR [Suspect]
     Active Substance: ACYCLOVIR
     Indication: PREMEDICATION
     Dosage: 200 MG,BID
     Route: 048
     Dates: start: 20160727
  10. AMLODIPINE [Concomitant]
     Active Substance: AMLODIPINE BESYLATE
     Dosage: UNK UNK, UNK
     Route: 065
  11. TRANDOLAPRIL. [Concomitant]
     Active Substance: TRANDOLAPRIL
     Dosage: UNK UNK, UNK
     Route: 065
  12. PARACETAMOL [Concomitant]
     Active Substance: ACETAMINOPHEN
     Indication: PREMEDICATION
     Dosage: 975 MG,PRN
     Route: 048
     Dates: start: 20160727

REACTIONS (24)
  - Intestinal perforation [Recovered/Resolved]
  - Fatigue [Recovered/Resolved]
  - Urine abnormality [Unknown]
  - Tachycardia [Recovered/Resolved]
  - Nausea [Recovered/Resolved]
  - Vaginal haemorrhage [Not Recovered/Not Resolved]
  - White blood cells urine positive [Unknown]
  - Somnolence [Recovered/Resolved]
  - Flushing [Recovered/Resolved]
  - Mobility decreased [Unknown]
  - Abdominal pain [Recovered/Resolved]
  - Bacterial test [Unknown]
  - White blood cell count decreased [Not Recovered/Not Resolved]
  - Vaginal discharge [Not Recovered/Not Resolved]
  - Somnolence [Recovered/Resolved]
  - Abscess [Recovered/Resolved]
  - Red blood cells urine positive [Unknown]
  - Pyrexia [Recovered/Resolved]
  - Blood pressure decreased [Recovered/Resolved]
  - Dizziness [Recovered/Resolved]
  - Endometrial ablation [Recovered/Resolved]
  - Poor quality sleep [Not Recovered/Not Resolved]
  - Haematocrit decreased [Unknown]
  - Cystitis [Recovered/Resolved]

NARRATIVE: CASE EVENT DATE: 20160727
